FAERS Safety Report 17205307 (Version 4)
Quarter: 2022Q1

REPORT INFORMATION
  Report Type: Spontaneous
  Country: US (occurrence: US)
  Receive Date: 20191227
  Receipt Date: 20220127
  Transmission Date: 20220423
  Serious: Yes (Other)
  Sender: FDA-Public Use
  Company Number: US-SUN PHARMACEUTICAL INDUSTRIES LTD-2019R1-231679

PATIENT
  Age: 17 Year
  Sex: Female

DRUGS (1)
  1. SULFAMETHOXAZOLE\TRIMETHOPRIM [Suspect]
     Active Substance: SULFAMETHOXAZOLE\TRIMETHOPRIM
     Indication: Acne
     Dosage: UNK
     Route: 065

REACTIONS (7)
  - Acute respiratory failure [Unknown]
  - Hypoxia [Unknown]
  - Pharyngitis [Unknown]
  - Pneumonia [Unknown]
  - Lymphadenopathy [Unknown]
  - Pyrexia [Unknown]
  - Tachypnoea [Unknown]
